FAERS Safety Report 4985020-0 (Version None)
Quarter: 2006Q1

REPORT INFORMATION
  Report Type: 
  Country: None (occurrence: None)
  Receive Date: 20060309
  Receipt Date: 20050815
  Transmission Date: 20060701
  Serious: Yes (Other)
  Sender: FDA-Public Use
  Company Number: 414404

PATIENT
  Sex: 0

DRUGS (1)
  1. ISOTRETINOIN [Suspect]
     Indication: ACNE CYSTIC
     Dosage: 10 MG DAILY ORAL
     Route: 048
     Dates: start: 20050524, end: 20050708

REACTIONS (2)
  - NO ADVERSE EFFECT [None]
  - PREGNANCY [None]
